FAERS Safety Report 10566772 (Version 1)
Quarter: 2014Q4

REPORT INFORMATION
  Report Type: Spontaneous
  Country: FR (occurrence: FR)
  Receive Date: 20141105
  Receipt Date: 20141105
  Transmission Date: 20150529
  Serious: Yes (Other)
  Sender: FDA-Public Use
  Company Number: FR-BAYER-2014-159837

PATIENT
  Age: 49 Year
  Sex: Female
  Weight: 57 kg

DRUGS (2)
  1. SUTENT [Suspect]
     Active Substance: SUNITINIB MALATE
     Indication: PAPILLARY THYROID CANCER
     Dosage: 37.5 MG, QD FOR 14 DAYS/21 DAYS
     Dates: start: 201406, end: 201408
  2. NEXAVAR [Suspect]
     Active Substance: SORAFENIB
     Indication: PAPILLARY THYROID CANCER
     Dosage: 2 DF, QD
     Route: 048
     Dates: start: 201312, end: 201406

REACTIONS (2)
  - Osteonecrosis of jaw [None]
  - Papillary thyroid cancer [None]

NARRATIVE: CASE EVENT DATE: 201408
